FAERS Safety Report 8555474-1 (Version None)
Quarter: 2012Q3

REPORT INFORMATION
  Report Type: 
  Country: None (occurrence: None)
  Receive Date: 20120731
  Receipt Date: 20110722
  Transmission Date: 20120928
  Serious: No
  Sender: FDA-Public Use
  Company Number: US-ASTRAZENECA-2011SE12415

PATIENT
  Age: 47 Year
  Sex: Female

DRUGS (6)
  1. SEROQUEL XR [Suspect]
     Indication: DEPRESSION
     Route: 048
     Dates: end: 20110118
  2. SEROQUEL XR [Suspect]
     Indication: INSOMNIA
     Route: 048
     Dates: end: 20110118
  3. SEROQUEL XR [Suspect]
     Route: 048
     Dates: start: 20110118
  4. SEROQUEL XR [Suspect]
     Route: 048
     Dates: start: 20110118
  5. WELLBUTRIN [Concomitant]
  6. BUSPAR [Concomitant]

REACTIONS (8)
  - ADVERSE EVENT [None]
  - ANXIETY [None]
  - DEPRESSION [None]
  - MOOD ALTERED [None]
  - DRUG INEFFECTIVE [None]
  - MENOPAUSE [None]
  - INSOMNIA [None]
  - DRUG DOSE OMISSION [None]
